FAERS Safety Report 12632393 (Version 3)
Quarter: 2016Q3

REPORT INFORMATION
  Report Type: Spontaneous
  Country: US (occurrence: US)
  Receive Date: 20160808
  Receipt Date: 20160825
  Transmission Date: 20161109
  Serious: No
  Sender: FDA-Public Use
  Company Number: US-BEH-2016062701

PATIENT
  Sex: Female
  Weight: 56.25 kg

DRUGS (33)
  1. LEVALBUTEROL CONCENTRATE [Concomitant]
  2. ZAFIRLUKAST. [Concomitant]
     Active Substance: ZAFIRLUKAST
  3. MAGNESIUM [Concomitant]
     Active Substance: MAGNESIUM
  4. LIDOCAINE. [Concomitant]
     Active Substance: LIDOCAINE
  5. DICYCLOMINE [Concomitant]
     Active Substance: DICYCLOMINE HYDROCHLORIDE
  6. COLACE [Concomitant]
     Active Substance: DOCUSATE SODIUM
  7. PROPAFENONE. [Concomitant]
     Active Substance: PROPAFENONE
  8. XOPENEX [Concomitant]
     Active Substance: LEVALBUTEROL HYDROCHLORIDE
  9. BIOTIN [Concomitant]
     Active Substance: BIOTIN
  10. GAS-X [Concomitant]
     Active Substance: DIMETHICONE
  11. ZINC-15 [Concomitant]
  12. ZYRTEC [Concomitant]
     Active Substance: CETIRIZINE HYDROCHLORIDE
  13. IPRATROPIUM BROMIDE. [Concomitant]
     Active Substance: IPRATROPIUM BROMIDE
  14. QVAR [Concomitant]
     Active Substance: BECLOMETHASONE DIPROPIONATE
  15. LIDOCAINE/PRILOCAINE [Concomitant]
     Active Substance: LIDOCAINE\PRILOCAINE
  16. PANTOPRAZOLE [Concomitant]
     Active Substance: PANTOPRAZOLE SODIUM
  17. ADVAIR HFA [Concomitant]
     Active Substance: FLUTICASONE PROPIONATE\SALMETEROL XINAFOATE
  18. AZELASTINE [Concomitant]
     Active Substance: AZELASTINE
  19. SELENIUM [Concomitant]
     Active Substance: SELENIUM
  20. PROBIOTIC [Concomitant]
     Active Substance: PROBIOTICS NOS
  21. PROMETHAZINE [Concomitant]
     Active Substance: PROMETHAZINE\PROMETHAZINE HYDROCHLORIDE
  22. ASPIRIN. [Concomitant]
     Active Substance: ASPIRIN
  23. VITAMIN D [Concomitant]
     Active Substance: CHOLECALCIFEROL
  24. CALCIUM + D3 [Concomitant]
     Active Substance: CALCIUM\CHOLECALCIFEROL
  25. MYRBETRIQ [Concomitant]
     Active Substance: MIRABEGRON
  26. HIZENTRA [Suspect]
     Active Substance: HUMAN IMMUNOGLOBULIN G
     Indication: IMMUNODEFICIENCY COMMON VARIABLE
     Dosage: 10 G, QW
     Route: 058
     Dates: start: 201512
  27. ACETAMINOPHEN. [Concomitant]
     Active Substance: ACETAMINOPHEN
  28. DIPHENHYDRAMINE. [Concomitant]
     Active Substance: DIPHENHYDRAMINE
  29. EPIPEN [Concomitant]
     Active Substance: EPINEPHRINE
  30. LIOTHYRONINE [Concomitant]
     Active Substance: LIOTHYRONINE
  31. RANITIDINE. [Concomitant]
     Active Substance: RANITIDINE
  32. ZIPSOR [Concomitant]
     Active Substance: DICLOFENAC POTASSIUM
  33. TIROSINT [Concomitant]
     Active Substance: LEVOTHYROXINE SODIUM

REACTIONS (2)
  - Dry mouth [Unknown]
  - Swollen tongue [Unknown]
